FAERS Safety Report 5623707-7 (Version None)
Quarter: 2008Q1

REPORT INFORMATION
  Report Type: 
  Country: None (occurrence: None)
  Receive Date: 20080212
  Receipt Date: 20080206
  Transmission Date: 20080703
  Serious: Yes (Other)
  Sender: FDA-Public Use
  Company Number: US-GILEAD-2007-0014632

PATIENT
  Sex: Female
  Weight: 83.99 kg

DRUGS (10)
  1. LETAIRIS [Suspect]
     Indication: PULMONARY HYPERTENSION
     Route: 048
     Dates: start: 20071123
  2. VIAGRA [Concomitant]
     Indication: PULMONARY HYPERTENSION
     Route: 048
  3. XANAX [Concomitant]
     Indication: ANXIETY
     Route: 048
  4. NEURONTIN [Concomitant]
     Indication: NEUROPATHY PERIPHERAL
     Route: 048
  5. REMERON [Concomitant]
     Indication: DEPRESSION
     Route: 048
  6. SINGULAIR [Concomitant]
     Indication: ASTHMA
     Route: 048
  7. EFFEXOR [Concomitant]
     Indication: DEPRESSION
     Route: 048
  8. WELLBUTRIN [Concomitant]
     Indication: DEPRESSION
  9. LEVOTHYROXINE SODIUM [Concomitant]
     Indication: HYPOTHYROIDISM
     Route: 048
  10. POTASSIUM GLUCONATE TAB [Concomitant]
     Indication: RHEUMATOID ARTHRITIS
     Route: 048

REACTIONS (8)
  - CHEST DISCOMFORT [None]
  - DYSARTHRIA [None]
  - DYSKINESIA [None]
  - DYSPNOEA [None]
  - HEADACHE [None]
  - NASAL CONGESTION [None]
  - OEDEMA PERIPHERAL [None]
  - SPUTUM DISCOLOURED [None]
